FAERS Safety Report 20560995 (Version 1)
Quarter: 2022Q1

REPORT INFORMATION
  Report Type: Spontaneous
  Country: US (occurrence: US)
  Receive Date: 20220307
  Receipt Date: 20220307
  Transmission Date: 20220423
  Serious: No
  Sender: FDA-Public Use
  Company Number: US-009507513-2202USA006965

PATIENT
  Age: 51 Year
  Sex: Female

DRUGS (6)
  1. TEMODAR [Suspect]
     Active Substance: TEMOZOLOMIDE
     Indication: Oesophageal cancer metastatic
     Route: 048
  2. TEMODAR [Suspect]
     Active Substance: TEMOZOLOMIDE
     Indication: Neuroendocrine carcinoma metastatic
  3. CAPECITABINE [Concomitant]
     Active Substance: CAPECITABINE
     Indication: Neuroendocrine carcinoma metastatic
  4. CAPECITABINE [Concomitant]
     Active Substance: CAPECITABINE
     Indication: Oesophageal cancer metastatic
  5. LANREOTIDE [Concomitant]
     Active Substance: LANREOTIDE
     Indication: Neuroendocrine carcinoma metastatic
  6. LANREOTIDE [Concomitant]
     Active Substance: LANREOTIDE
     Indication: Oesophageal cancer metastatic

REACTIONS (1)
  - Product use in unapproved indication [Unknown]
